FAERS Safety Report 10201215 (Version 2)
Quarter: 2014Q2

REPORT INFORMATION
  Report Type: Spontaneous
  Country: BR (occurrence: BR)
  Receive Date: 20140528
  Receipt Date: 20140605
  Transmission Date: 20141212
  Serious: No
  Sender: FDA-Public Use
  Company Number: BR-PFIZER INC-2014146330

PATIENT
  Age: 59 Year
  Sex: Female

DRUGS (4)
  1. TECTA [Suspect]
     Dosage: 1 DF, 1X/DAY
     Route: 065
     Dates: start: 20140410, end: 20140517
  2. SELOZOK [Concomitant]
  3. TECNOMET [Concomitant]
  4. REUQUINOL [Concomitant]

REACTIONS (10)
  - Dyspnoea [Recovered/Resolved]
  - Palpitations [Unknown]
  - Cold sweat [Recovered/Resolved]
  - Faeces discoloured [Recovered/Resolved]
  - Diarrhoea [Recovered/Resolved]
  - Dizziness [Unknown]
  - Nausea [Unknown]
  - Vision blurred [Unknown]
  - Headache [Unknown]
  - Abdominal pain [Unknown]
